FAERS Safety Report 21165045 (Version 3)
Quarter: 2022Q3

REPORT INFORMATION
  Report Type: Spontaneous
  Country: US (occurrence: US)
  Receive Date: 20220803
  Receipt Date: 20220826
  Transmission Date: 20221026
  Serious: No
  Sender: FDA-Public Use
  Company Number: US-ORGANON-O2207USA001378

PATIENT
  Sex: Female
  Weight: 89.796 kg

DRUGS (1)
  1. NEXPLANON [Suspect]
     Active Substance: ETONOGESTREL
     Dosage: 1 IMPLANT, ONE EVERY THREE YEARS
     Route: 059
     Dates: start: 20210525, end: 20220712

REACTIONS (2)
  - Device breakage [Recovered/Resolved]
  - No adverse event [Unknown]
